FAERS Safety Report 11838395 (Version 5)
Quarter: 2016Q1

REPORT INFORMATION
  Report Type: Report from Study
  Country: US (occurrence: US)
  Receive Date: 20151215
  Receipt Date: 20160320
  Transmission Date: 20160525
  Serious: Yes (Hospitalization)
  Sender: FDA-Public Use
  Company Number: US-B.I. PHARMACEUTICALS,INC./RIDGEFIELD-2015-BI-69753BP

PATIENT
  Sex: Male

DRUGS (1)
  1. OFEV [Suspect]
     Active Substance: NINTEDANIB
     Indication: IDIOPATHIC PULMONARY FIBROSIS
     Dosage: 300 MG
     Route: 048
     Dates: start: 20151103

REACTIONS (12)
  - Pneumonia [Unknown]
  - Dyspnoea exertional [Unknown]
  - Constipation [Unknown]
  - Diarrhoea [Unknown]
  - Weight decreased [Unknown]
  - Dyspnoea [Unknown]
  - Productive cough [Unknown]
  - Seasonal allergy [Unknown]
  - Feeling abnormal [Unknown]
  - Cough [Unknown]
  - Fatigue [Unknown]
  - Respiratory tract congestion [Unknown]
